FAERS Safety Report 5401542-2 (Version None)
Quarter: 2007Q3

REPORT INFORMATION
  Report Type: 
  Country: None (occurrence: None)
  Receive Date: 20070731
  Receipt Date: 20070726
  Transmission Date: 20080115
  Serious: No
  Sender: FDA-Public Use
  Company Number: DE-ALLERGAN-0707559US

PATIENT
  Sex: Female

DRUGS (2)
  1. BOTOX [Suspect]
     Indication: TORTICOLLIS
     Dosage: 500 UNITS, UNK
     Dates: start: 20061107, end: 20061107
  2. BOTOX [Suspect]
     Dosage: 400 UNITS, UNK
     Dates: start: 20060627, end: 20060627

REACTIONS (1)
  - ATRIAL FIBRILLATION [None]
